FAERS Safety Report 12459284 (Version 2)
Quarter: 2016Q2

REPORT INFORMATION
  Report Type: Other
  Country: US (occurrence: US)
  Receive Date: 20160613
  Receipt Date: 20160615
  Transmission Date: 20160815
  Serious: Yes (Other)
  Sender: FDA-Public Use
  Company Number: US-ALEMBIC PHARMACUETICALS LIMITED-2016SCAL000443

PATIENT

DRUGS (1)
  1. APO TEMISARTAN [Suspect]
     Active Substance: TELMISARTAN
     Indication: PRODUCT USED FOR UNKNOWN INDICATION
     Dosage: 30 BOTTLE
     Dates: start: 20160101

REACTIONS (3)
  - Product substitution issue [Unknown]
  - Psoriasis [Unknown]
  - Hypertension [Unknown]

NARRATIVE: CASE EVENT DATE: 20160101
